FAERS Safety Report 8958538 (Version 1)
Quarter: 2012Q4

REPORT INFORMATION
  Report Type: Spontaneous
  Country: CZ (occurrence: None)
  Receive Date: 20121128
  Receipt Date: 20121128
  Transmission Date: 20130627
  Serious: Yes (Hospitalization)
  Sender: FDA-Public Use
  Company Number: AUR-APL-2012-05041

PATIENT
  Age: 81 Year
  Sex: Male

DRUGS (3)
  1. CLOPIDOGREL [Suspect]
     Indication: ACUTE MYOCARDIAL INFARCTION
  2. ACETYLSALICYLIC ACID (ACETYLSALICYLIC ACID) [Concomitant]
  3. FONDAPARINUX (FONDAPARINUX) [Concomitant]

REACTIONS (5)
  - Thrombosis in device [None]
  - Systolic dysfunction [None]
  - Chest pain [None]
  - Electrocardiogram ST segment depression [None]
  - Drug ineffective [None]
